FAERS Safety Report 4798904-3 (Version None)
Quarter: 2005Q4

REPORT INFORMATION
  Report Type: 
  Country: None (occurrence: None)
  Receive Date: 20051014
  Receipt Date: 20051005
  Transmission Date: 20060501
  Serious: Yes (Other)
  Sender: FDA-Public Use
  Company Number: PHBS2005JP14655

PATIENT
  Age: 82 Year
  Sex: Male

DRUGS (1)
  1. STARSIS [Suspect]
     Dosage: 60 MG, QD
     Route: 048
     Dates: start: 20040617, end: 20050811

REACTIONS (3)
  - ALANINE AMINOTRANSFERASE INCREASED [None]
  - ASPARTATE AMINOTRANSFERASE INCREASED [None]
  - CHOLELITHIASIS [None]
